FAERS Safety Report 18680006 (Version 2)
Quarter: 2021Q1

REPORT INFORMATION
  Report Type: Spontaneous
  Country: US (occurrence: US)
  Receive Date: 20201229
  Receipt Date: 20210208
  Transmission Date: 20210419
  Serious: Yes (Hospitalization)
  Sender: FDA-Public Use
  Company Number: US-CLOVIS ONCOLOGY-CLO-2020-001415

PATIENT
  Age: 78 Year
  Sex: Female

DRUGS (4)
  1. RUBRACA [Suspect]
     Active Substance: RUCAPARIB CAMSYLATE
     Indication: OVARIAN CANCER
     Dosage: 600 MG, BID
     Route: 048
     Dates: start: 202004, end: 20200716
  2. RUBRACA [Suspect]
     Active Substance: RUCAPARIB CAMSYLATE
     Dosage: 600 MG, BID
     Route: 048
     Dates: start: 202101
  3. RUBRACA [Suspect]
     Active Substance: RUCAPARIB CAMSYLATE
     Dosage: 150 MG IN MORNING AND 150 MG AT NIGHT
     Route: 048
     Dates: start: 20200729, end: 20200807
  4. RUBRACA [Suspect]
     Active Substance: RUCAPARIB CAMSYLATE
     Dosage: UNK
     Dates: end: 20201201

REACTIONS (5)
  - Vomiting [Recovered/Resolved]
  - Coronavirus infection [Unknown]
  - Feeling abnormal [Unknown]
  - Asthenia [Unknown]
  - Eating disorder [Recovered/Resolved]

NARRATIVE: CASE EVENT DATE: 2020
